FAERS Safety Report 22528011 (Version 2)
Quarter: 2024Q3

REPORT INFORMATION
  Report Type: Spontaneous
  Country: BR (occurrence: BR)
  Receive Date: 20230606
  Receipt Date: 20240829
  Transmission Date: 20241017
  Serious: Yes (Hospitalization, Other)
  Sender: CELLTRION
  Company Number: BR-CELLTRION INC.-2023BR011422

PATIENT

DRUGS (2)
  1. INFLIXIMAB [Suspect]
     Active Substance: INFLIXIMAB
     Indication: Crohn^s disease
     Dosage: 3 AMPOULES EVERY 2 MONTHS
     Dates: start: 20220818
  2. AZATHIOPRINE [Concomitant]
     Active Substance: AZATHIOPRINE
     Indication: Crohn^s disease
     Dosage: 2 CAPSULES PER DAY (START DATE: 8 MONTHS AGO)
     Route: 048

REACTIONS (6)
  - Crohn^s disease [Recovering/Resolving]
  - Renal impairment [Unknown]
  - Weight increased [Unknown]
  - Pain [Recovered/Resolved]
  - Abdominal pain [Recovered/Resolved]
  - Intentional dose omission [Unknown]

NARRATIVE: CASE EVENT DATE: 20230513
